FAERS Safety Report 4363189-9 (Version None)
Quarter: 2004Q2

REPORT INFORMATION
  Report Type: 
  Country: None (occurrence: None)
  Receive Date: 20040524
  Receipt Date: 20040512
  Transmission Date: 20050107
  Serious: Yes (Life-Threatening, Hospitalization)
  Sender: FDA-Public Use
  Company Number: FR-BRISTOL-MYERS SQUIBB COMPANY-12589800

PATIENT
  Age: 62 Year
  Sex: Male

DRUGS (1)
  1. GLUCOPHAGE [Suspect]
     Indication: DIABETES MELLITUS NON-INSULIN-DEPENDENT
     Route: 048
     Dates: end: 20040307

REACTIONS (5)
  - DIABETES MELLITUS [None]
  - HYPERKALAEMIA [None]
  - LACTIC ACIDOSIS [None]
  - LUNG INFECTION [None]
  - RENAL FAILURE ACUTE [None]
